FAERS Safety Report 5173852-8 (Version None)
Quarter: 2006Q4

REPORT INFORMATION
  Report Type: 
  Country: None (occurrence: None)
  Receive Date: 20061214
  Receipt Date: 20061208
  Transmission Date: 20070319
  Serious: Yes (Other)
  Sender: FDA-Public Use
  Company Number: BW-GLAXOSMITHKLINE-B0450503A

PATIENT
  Sex: Female

DRUGS (3)
  1. COMBIVIR [Suspect]
     Indication: HIV INFECTION
     Dosage: 2TAB PER DAY
     Route: 048
     Dates: start: 20041011
  2. SUSTIVA [Suspect]
     Dosage: 600MG PER DAY
     Route: 048
     Dates: start: 20041011, end: 20050106
  3. VIRAMUNE [Suspect]
     Route: 048
     Dates: start: 20050106

REACTIONS (2)
  - ABORTION SPONTANEOUS [None]
  - INTRA-UTERINE DEATH [None]
